FAERS Safety Report 6839262-X (Version None)
Quarter: 2010Q3

REPORT INFORMATION
  Report Type: 
  Country: None (occurrence: None)
  Receive Date: 20100714
  Receipt Date: 20090811
  Transmission Date: 20110219
  Serious: Yes (Other)
  Sender: FDA-Public Use
  Company Number: US-KINGPHARMUSA00001-K200900968

PATIENT
  Sex: Female

DRUGS (1)
  1. BICILLIN L-A [Suspect]
     Indication: CONGENITAL SYPHILIS
     Dosage: 180000 U, SINGLE
     Route: 030
     Dates: start: 20090809, end: 20090809

REACTIONS (1)
  - THROMBOCYTOPENIA [None]
